FAERS Safety Report 9616847 (Version 1)
Quarter: 2013Q4

REPORT INFORMATION
  Report Type: Spontaneous
  Country: IN (occurrence: IN)
  Receive Date: 20131011
  Receipt Date: 20131011
  Transmission Date: 20140711
  Serious: Yes (Other)
  Sender: FDA-Public Use
  Company Number: IN-ROXANE LABORATORIES, INC.-2013-RO-01635RO

PATIENT
  Age: 42 Year
  Sex: Female

DRUGS (3)
  1. LITHIUM CARBONATE [Suspect]
     Indication: BIPOLAR DISORDER
     Dosage: 750 MG
     Route: 048
  2. LIGNOCAINE HYDROCHLORIDE [Suspect]
     Indication: NERVE BLOCK
  3. ADRENALINE BITARTRATE [Suspect]
     Indication: NERVE BLOCK

REACTIONS (1)
  - Therapeutic response prolonged [Recovered/Resolved]
